FAERS Safety Report 14738579 (Version 1)
Quarter: 2018Q2

REPORT INFORMATION
  Report Type: Report from Study
  Country: JP (occurrence: JP)
  Receive Date: 20180409
  Receipt Date: 20180409
  Transmission Date: 20180711
  Serious: Yes (Death)
  Sender: FDA-Public Use
  Company Number: PHHY2009JP074277

PATIENT
  Age: 55 Year
  Sex: Female
  Weight: 40 kg

DRUGS (4)
  1. TYKERB [Suspect]
     Active Substance: LAPATINIB DITOSYLATE
     Indication: BREAST CANCER
     Dosage: 1250 MG
     Route: 048
     Dates: start: 20090625, end: 20090804
  2. XELODA [Concomitant]
     Active Substance: CAPECITABINE
     Indication: BREAST CANCER
     Dosage: 1800 MG,
     Route: 048
     Dates: start: 20090625, end: 20090804
  3. XELODA [Concomitant]
     Active Substance: CAPECITABINE
     Dosage: 1200 MG
     Route: 048
     Dates: start: 20090805, end: 20091016
  4. TYKERB [Suspect]
     Active Substance: LAPATINIB DITOSYLATE
     Dosage: 1000 MG
     Route: 048
     Dates: start: 20090805, end: 20091016

REACTIONS (2)
  - Breast cancer [Fatal]
  - Diarrhoea [Recovering/Resolving]

NARRATIVE: CASE EVENT DATE: 20090709
